FAERS Safety Report 9643448 (Version 1)
Quarter: 2013Q4

REPORT INFORMATION
  Report Type: Spontaneous
  Country: US (occurrence: US)
  Receive Date: 20131024
  Receipt Date: 20131024
  Transmission Date: 20140711
  Serious: No
  Sender: FDA-Public Use
  Company Number: US-BAYER-2013-129070

PATIENT
  Sex: Female

DRUGS (2)
  1. ALEVE TABLET [Suspect]
     Indication: PAIN
  2. ALEVE TABLET [Suspect]
     Indication: PYREXIA

REACTIONS (2)
  - Dizziness [None]
  - Drug ineffective [None]
